FAERS Safety Report 9496832 (Version 2)
Quarter: 2013Q3

REPORT INFORMATION
  Report Type: Spontaneous
  Country: CA (occurrence: None)
  Receive Date: 20130830
  Receipt Date: 20130906
  Transmission Date: 20140515
  Serious: Yes (Other)
  Sender: FDA-Public Use
  Company Number: 7231997

PATIENT
  Age: 49 Year
  Sex: Female

DRUGS (4)
  1. LEVOTHYROXINE [Suspect]
     Indication: PRODUCT USED FOR UNKNOWN INDICATION
  2. NOVOLIN [Suspect]
     Indication: TYPE 2 DIABETES MELLITUS
     Dosage: 0.5 U/KG/DAY (AT MEALS)
  3. ASPIRIN (ACETYLSALICYLIC ACID) [Concomitant]
  4. DILTIAZEM [Concomitant]

REACTIONS (2)
  - Anaphylactic reaction [None]
  - Type I hypersensitivity [None]
